FAERS Safety Report 23948187 (Version 3)
Quarter: 2024Q3

REPORT INFORMATION
  Report Type: Spontaneous
  Country: US (occurrence: US)
  Receive Date: 20240607
  Receipt Date: 20240806
  Transmission Date: 20241016
  Serious: No
  Sender: BRISTOL MYERS SQUIBB
  Company Number: US-BRISTOL-MYERS SQUIBB COMPANY-2024-091837

PATIENT
  Age: 72 Year
  Sex: Female

DRUGS (20)
  1. REVLIMID [Suspect]
     Active Substance: LENALIDOMIDE
     Indication: Plasma cell myeloma
     Dosage: FREQ : ONCE DAILY FOR 21 DAYS ON THEN 7 DAY REST PERIOD TO COMPLETE A 28 DAY CYCLE
     Route: 048
     Dates: start: 20240503
  2. REVLIMID [Suspect]
     Active Substance: LENALIDOMIDE
     Route: 048
     Dates: start: 20240503, end: 20240617
  3. REVLIMID [Suspect]
     Active Substance: LENALIDOMIDE
     Route: 048
     Dates: start: 202407
  4. LISINOPRIL [Concomitant]
     Active Substance: LISINOPRIL
     Indication: Product used for unknown indication
  5. MELOXICAM [Concomitant]
     Active Substance: MELOXICAM
     Indication: Product used for unknown indication
  6. DEXAMETHASONE [Concomitant]
     Active Substance: DEXAMETHASONE
     Indication: Product used for unknown indication
  7. GABAPENTIN [Concomitant]
     Active Substance: GABAPENTIN
     Indication: Product used for unknown indication
  8. ACETAMINOPHEN\HYDROCODONE [Concomitant]
     Active Substance: ACETAMINOPHEN\HYDROCODONE
     Indication: Product used for unknown indication
     Dosage: 10-325
  9. METFORMIN HYDROCHLORIDE [Concomitant]
     Active Substance: METFORMIN HYDROCHLORIDE
     Indication: Product used for unknown indication
  10. ONDANSETRON [Concomitant]
     Active Substance: ONDANSETRON
     Indication: Product used for unknown indication
  11. OXYCODONE [Concomitant]
     Active Substance: OXYCODONE
     Indication: Product used for unknown indication
  12. PROPRANOLOL [Concomitant]
     Active Substance: PROPRANOLOL HYDROCHLORIDE
     Indication: Product used for unknown indication
     Dosage: IMMEDIATE RELEASE
  13. BACTRIM [Concomitant]
     Active Substance: SULFAMETHOXAZOLE\TRIMETHOPRIM
     Indication: Product used for unknown indication
  14. VALACYCLOVIR HYDROCHLORIDE [Concomitant]
     Active Substance: VALACYCLOVIR HYDROCHLORIDE
     Indication: Product used for unknown indication
  15. ALIGN PROBIOTIC DIGESTIVE SUPPORT ADVANCED [Concomitant]
     Indication: Product used for unknown indication
  16. ASPIRIN [Concomitant]
     Active Substance: ASPIRIN
     Indication: Product used for unknown indication
  17. CALCIUM CARBONATE\VITAMIN D [Concomitant]
     Active Substance: CALCIUM CARBONATE\VITAMIN D
     Indication: Product used for unknown indication
  18. ASCORBIC ACID\NIACINAMIDE\PYRIDOXINE\RIBOFLAVIN\THIAMINE [Concomitant]
     Active Substance: ASCORBIC ACID\NIACINAMIDE\PYRIDOXINE\RIBOFLAVIN\THIAMINE
     Indication: Product used for unknown indication
  19. CALCIUM [Concomitant]
     Active Substance: CALCIUM
     Indication: Product used for unknown indication
  20. VITAMIN C [Concomitant]
     Active Substance: ASCORBIC ACID
     Indication: Product used for unknown indication

REACTIONS (11)
  - Dysgeusia [Unknown]
  - Peripheral swelling [Unknown]
  - Joint swelling [Unknown]
  - Burning sensation [Recovering/Resolving]
  - Rash [Recovering/Resolving]
  - Pyrexia [Recovering/Resolving]
  - Eye irritation [Recovering/Resolving]
  - Throat irritation [Recovering/Resolving]
  - Alopecia [Unknown]
  - Chapped lips [Unknown]
  - Oral discomfort [Unknown]

NARRATIVE: CASE EVENT DATE: 20240501
